FAERS Safety Report 23070571 (Version 4)
Quarter: 2024Q2

REPORT INFORMATION
  Report Type: Report from Study
  Country: CA (occurrence: CA)
  Receive Date: 20231016
  Receipt Date: 20240620
  Transmission Date: 20240716
  Serious: Yes (Hospitalization, Other)
  Sender: FDA-Public Use
  Company Number: CA-TAKEDA-2022TUS031402

PATIENT
  Sex: Male
  Weight: 77 kg

DRUGS (5)
  1. HUMAN IMMUNOGLOBULIN G [Suspect]
     Active Substance: HUMAN IMMUNOGLOBULIN G
     Indication: Bacterial infection
     Dosage: 10 GRAM, 1/WEEK
     Route: 058
     Dates: start: 20180101
  2. HUMAN IMMUNOGLOBULIN G [Suspect]
     Active Substance: HUMAN IMMUNOGLOBULIN G
     Indication: Hypogammaglobulinaemia
     Dosage: 10 GRAM, 1/WEEK
     Route: 050
  3. HUMAN IMMUNOGLOBULIN G [Suspect]
     Active Substance: HUMAN IMMUNOGLOBULIN G
     Indication: Immunodeficiency common variable
  4. HUMAN IMMUNOGLOBULIN G [Suspect]
     Active Substance: HUMAN IMMUNOGLOBULIN G
     Indication: Primary immunodeficiency syndrome
  5. TRAMADOL [Suspect]
     Active Substance: TRAMADOL\TRAMADOL HYDROCHLORIDE
     Indication: Product used for unknown indication
     Dosage: UNK
     Route: 065

REACTIONS (19)
  - Staphylococcal infection [Unknown]
  - COVID-19 pneumonia [Unknown]
  - Pneumonia pneumococcal [Unknown]
  - Sepsis [Unknown]
  - Lower respiratory tract infection [Unknown]
  - Purulence [Recovering/Resolving]
  - Nervousness [Unknown]
  - Spinal osteoarthritis [Unknown]
  - Nerve compression [Unknown]
  - Productive cough [Unknown]
  - Herpes zoster [Unknown]
  - Haemoglobin decreased [Recovering/Resolving]
  - Vitamin B12 deficiency [Unknown]
  - Malaise [Unknown]
  - Pain [Unknown]
  - Headache [Unknown]
  - Dyspnoea [Recovering/Resolving]
  - Needle issue [Unknown]
  - Product use in unapproved indication [Unknown]

NARRATIVE: CASE EVENT DATE: 20220101
